FAERS Safety Report 10611418 (Version 2)
Quarter: 2014Q4

REPORT INFORMATION
  Report Type: Spontaneous
  Country: US (occurrence: US)
  Receive Date: 20141126
  Receipt Date: 20141203
  Transmission Date: 20150529
  Serious: Yes (Hospitalization, Other)
  Sender: FDA-Public Use
  Company Number: US-GILEAD-2014-0124028

PATIENT
  Age: 74 Year
  Sex: Female

DRUGS (3)
  1. VELETRI [Concomitant]
     Active Substance: EPOPROSTENOL
  2. COUMADIN [Concomitant]
     Active Substance: WARFARIN SODIUM
  3. LETAIRIS [Suspect]
     Active Substance: AMBRISENTAN
     Indication: PRODUCT USED FOR UNKNOWN INDICATION
     Dosage: 10 MG, QD
     Route: 065
     Dates: start: 20100525

REACTIONS (4)
  - Blood glucose decreased [Unknown]
  - Pulmonary oedema [Unknown]
  - Loss of consciousness [Unknown]
  - Pneumonia [Unknown]
